FAERS Safety Report 17970059 (Version 2)
Quarter: 2020Q3

REPORT INFORMATION
  Report Type: Report from Study
  Country: US (occurrence: US)
  Receive Date: 20200701
  Receipt Date: 20200707
  Transmission Date: 20201103
  Serious: Yes (Hospitalization)
  Sender: FDA-Public Use
  Company Number: US-ACTELION-A-US2020-205681

PATIENT
  Age: 39 Year
  Sex: Female

DRUGS (12)
  1. OPSUMIT [Suspect]
     Active Substance: MACITENTAN
     Indication: PULMONARY ARTERIAL HYPERTENSION
     Dosage: 10 MG, QD
     Route: 048
     Dates: start: 20191203
  2. LEVAQUIN [Concomitant]
     Active Substance: LEVOFLOXACIN
  3. KCL [Concomitant]
     Active Substance: POTASSIUM CHLORIDE
  4. VICTOZA [Concomitant]
     Active Substance: LIRAGLUTIDE
  5. LASIX [Concomitant]
     Active Substance: FUROSEMIDE
     Dosage: 40 MG
  6. REXULTI [Concomitant]
     Active Substance: BREXPIPRAZOLE
  7. ADEMPAS [Concomitant]
     Active Substance: RIOCIGUAT
  8. VITAMIN D2 [Concomitant]
     Active Substance: ERGOCALCIFEROL
  9. MAGNESIUM OXIDE. [Concomitant]
     Active Substance: MAGNESIUM OXIDE
  10. SINGULAIR [Concomitant]
     Active Substance: MONTELUKAST SODIUM
  11. CYMBALTA [Concomitant]
     Active Substance: DULOXETINE HYDROCHLORIDE
  12. METFORMIN [Concomitant]
     Active Substance: METFORMIN HYDROCHLORIDE

REACTIONS (6)
  - Dyspnoea [Recovered/Resolved]
  - Pulmonary oedema [Recovered/Resolved]
  - Oxygen saturation decreased [Recovered/Resolved]
  - Pleural effusion [Unknown]
  - Cardiomegaly [Recovered/Resolved]
  - Diarrhoea [Unknown]

NARRATIVE: CASE EVENT DATE: 20200517
